FAERS Safety Report 13476553 (Version 1)
Quarter: 2017Q2

REPORT INFORMATION
  Report Type: Spontaneous
  Country: US (occurrence: US)
  Receive Date: 20170424
  Receipt Date: 20170424
  Transmission Date: 20170830
  Serious: No
  Sender: FDA-Public Use
  Company Number: US-ABBVIE-16P-163-1637790-00

PATIENT
  Age: 42 Year
  Sex: Female

DRUGS (1)
  1. LUPRON DEPOT-PED [Suspect]
     Active Substance: LEUPROLIDE ACETATE
     Indication: UTERINE LEIOMYOMA
     Route: 030
     Dates: start: 20160418, end: 20160418

REACTIONS (2)
  - Drug dispensing error [Recovered/Resolved]
  - Wrong drug administered [Not Recovered/Not Resolved]

NARRATIVE: CASE EVENT DATE: 20160418
